FAERS Safety Report 6743833-9 (Version None)
Quarter: 2010Q2

REPORT INFORMATION
  Report Type: 
  Country: None (occurrence: None)
  Receive Date: 20100527
  Receipt Date: 20100225
  Transmission Date: 20101027
  Serious: No
  Sender: FDA-Public Use
  Company Number: US-KINGPHARMUSA00001-K201000229

PATIENT
  Age: 45 Year
  Sex: Female
  Weight: 52.154 kg

DRUGS (3)
  1. FLECTOR [Suspect]
     Indication: NECK PAIN
     Dosage: 1 PATCH, EVERY 12 HOURS
     Route: 061
     Dates: start: 20100201
  2. FLECTOR [Suspect]
     Indication: BACK PAIN
  3. SYNTHROID [Concomitant]
     Indication: HYPOTHYROIDISM
     Dosage: 112 MCG, QD
     Route: 048

REACTIONS (1)
  - DRUG INEFFECTIVE [None]
